FAERS Safety Report 7107508-9 (Version None)
Quarter: 2010Q4

REPORT INFORMATION
  Report Type: 
  Country: None (occurrence: None)
  Receive Date: 20101117
  Receipt Date: 20101102
  Transmission Date: 20110411
  Serious: Yes (Disabling)
  Sender: FDA-Public Use
  Company Number: GB-JNJFOC-20101105133

PATIENT
  Age: 87 Year
  Sex: Male
  Weight: 61.3 kg

DRUGS (8)
  1. TRAMADOL HYDROCHLORIDE [Suspect]
     Indication: NECK PAIN
     Route: 048
  2. ASPIRIN [Concomitant]
  3. CITALOPRAM [Concomitant]
  4. CO-BENELDOPA [Concomitant]
  5. DUTASTERIDE [Concomitant]
  6. ENTACAPONE [Concomitant]
  7. EPILIM CHRONO [Concomitant]
  8. SIMVASTATIN [Concomitant]

REACTIONS (3)
  - GAIT DISTURBANCE [None]
  - MOBILITY DECREASED [None]
  - TREMOR [None]
